FAERS Safety Report 6941245-6 (Version None)
Quarter: 2010Q3

REPORT INFORMATION
  Report Type: 
  Country: None (occurrence: None)
  Receive Date: 20100825
  Receipt Date: 20100719
  Transmission Date: 20110219
  Serious: No
  Sender: FDA-Public Use
  Company Number: US-BRISTOL-MYERS SQUIBB COMPANY-15194921

PATIENT
  Age: 54 Year
  Sex: Female

DRUGS (3)
  1. ONGLYZA [Suspect]
     Indication: DIABETES MELLITUS
     Dosage: INTERR ON 02JUL2010,RESTARTED ON 14JUL2010
     Route: 048
     Dates: start: 20100624
  2. SULFONYLUREA [Suspect]
  3. DIOVAN [Concomitant]
     Dosage: 1DF=16/12.5(UNIT NOT SPECIFIED) DAILY DOSE

REACTIONS (3)
  - DIZZINESS [None]
  - HEADACHE [None]
  - HYPOGLYCAEMIA [None]
